FAERS Safety Report 6003964-8 (Version None)
Quarter: 2008Q4

REPORT INFORMATION
  Report Type: 
  Country: None (occurrence: None)
  Receive Date: 20081212
  Receipt Date: 20081212
  Transmission Date: 20090506
  Serious: Yes (Life-Threatening, Hospitalization, Other)
  Sender: FDA-Public Use
  Company Number: None

PATIENT
  Age: 6 Year
  Sex: Male
  Weight: 40.8237 kg

DRUGS (2)
  1. HALDOL [Suspect]
     Indication: ATTENTION DEFICIT/HYPERACTIVITY DISORDER
     Dosage: 5 MG ONCE A DAY
     Dates: start: 19911007, end: 19911201
  2. HALOPERIDOL [Suspect]
     Indication: ATTENTION DEFICIT/HYPERACTIVITY DISORDER
     Dosage: 5 MG WHEN ANGRY
     Dates: start: 20081004, end: 20081104

REACTIONS (2)
  - HIV INFECTION [None]
  - PRODUCT QUALITY ISSUE [None]
